FAERS Safety Report 4511535-5 (Version None)
Quarter: 2004Q4

REPORT INFORMATION
  Report Type: 
  Country: None (occurrence: None)
  Receive Date: 20041129
  Receipt Date: 20040915
  Transmission Date: 20050328
  Serious: No
  Sender: FDA-Public Use
  Company Number: US-BRISTOL-MYERS SQUIBB COMPANY-12703567

PATIENT
  Age: 6 Year
  Sex: Male
  Weight: 21 kg

DRUGS (2)
  1. ABILIFY [Suspect]
     Indication: BIPOLAR DISORDER
     Route: 048
  2. LEXAPRO [Concomitant]
     Dosage: DECREASED TO 5 MG/DAY AND THEN TO 2.5 MG/DAY
     Dates: start: 20040801

REACTIONS (1)
  - VISION BLURRED [None]
